FAERS Safety Report 9371753 (Version 3)
Quarter: 2023Q4

REPORT INFORMATION
  Report Type: Spontaneous
  Country: AU (occurrence: AU)
  Receive Date: 20130627
  Receipt Date: 20231031
  Transmission Date: 20240109
  Serious: Yes (Hospitalization, Disabling, Congenital Anomaly, Other)
  Sender: FDA-Public Use
  Company Number: AU-SANOFI-AVENTIS-2013SA061932

PATIENT
  Sex: Male

DRUGS (20)
  1. ENOXAPARIN SODIUM [Suspect]
     Active Substance: ENOXAPARIN SODIUM
     Indication: Maternal exposure during pregnancy
     Dosage: 40 MG, BID
     Route: 064
     Dates: start: 2005
  2. ENOXAPARIN SODIUM [Suspect]
     Active Substance: ENOXAPARIN SODIUM
     Indication: Thrombosis prophylaxis
  3. AMOXICILLIN [Suspect]
     Active Substance: AMOXICILLIN
     Indication: Maternal exposure during pregnancy
     Dosage: UNK
     Route: 064
  4. AMOXICILLIN [Suspect]
     Active Substance: AMOXICILLIN
     Indication: Urinary tract infection
  5. AMPICILLIN [Suspect]
     Active Substance: AMPICILLIN
     Indication: Maternal exposure during pregnancy
     Dosage: UNK
     Route: 064
  6. AMPICILLIN [Suspect]
     Active Substance: AMPICILLIN
     Indication: Urinary tract infection
  7. CEFTRIAXONE [Suspect]
     Active Substance: CEFTRIAXONE\CEFTRIAXONE SODIUM
     Indication: Maternal exposure during pregnancy
     Dosage: UNK
     Route: 064
  8. CEFTRIAXONE [Suspect]
     Active Substance: CEFTRIAXONE\CEFTRIAXONE SODIUM
     Indication: Urinary tract infection
  9. CEPHALEXIN [Suspect]
     Active Substance: CEPHALEXIN
     Indication: Maternal exposure during pregnancy
     Dosage: UNK
     Route: 064
  10. CEPHALEXIN [Suspect]
     Active Substance: CEPHALEXIN
     Indication: Urinary tract infection
  11. FLUCONAZOLE [Suspect]
     Active Substance: FLUCONAZOLE
     Indication: Maternal exposure during pregnancy
     Dosage: UNK
     Route: 064
  12. FLUCONAZOLE [Suspect]
     Active Substance: FLUCONAZOLE
     Indication: Vulvovaginal candidiasis
  13. GENTAMICIN SULFATE [Suspect]
     Active Substance: GENTAMICIN SULFATE
     Indication: Maternal exposure during pregnancy
     Dosage: UNK
     Route: 064
  14. GENTAMICIN SULFATE [Suspect]
     Active Substance: GENTAMICIN SULFATE
     Indication: Urinary tract infection
  15. MEROPENEM [Suspect]
     Active Substance: MEROPENEM
     Indication: Maternal exposure during pregnancy
     Dosage: UNK
     Route: 064
  16. MEROPENEM [Suspect]
     Active Substance: MEROPENEM
     Indication: Urinary tract infection
  17. ACETAMINOPHEN [Suspect]
     Active Substance: ACETAMINOPHEN
     Indication: Maternal exposure during pregnancy
     Dosage: UNK
     Route: 064
  18. RANITIDINE [Suspect]
     Active Substance: RANITIDINE
     Indication: Maternal exposure during pregnancy
     Dosage: UNK
     Route: 064
  19. RANITIDINE [Suspect]
     Active Substance: RANITIDINE
     Indication: Haemorrhage prophylaxis
  20. HEPARIN SODIUM [Suspect]
     Active Substance: HEPARIN SODIUM
     Indication: Maternal exposure during pregnancy
     Dosage: 5000 IU, TID
     Route: 064

REACTIONS (10)
  - Congenital multiplex arthrogryposis [Unknown]
  - Foetal exposure during pregnancy [Unknown]
  - Talipes [Unknown]
  - Conductive deafness [Unknown]
  - Cerebral palsy [Unknown]
  - Diplegia [Unknown]
  - Hypotonia [Unknown]
  - Otitis media [Unknown]
  - Joint contracture [Unknown]
  - Joint dislocation [Unknown]
